FAERS Safety Report 7394257-5 (Version None)
Quarter: 2011Q2

REPORT INFORMATION
  Report Type: 
  Country: None (occurrence: None)
  Receive Date: 20110405
  Receipt Date: 20110329
  Transmission Date: 20111010
  Serious: Yes (Hospitalization)
  Sender: FDA-Public Use
  Company Number: US-PFIZER INC-2011044107

PATIENT
  Sex: Male

DRUGS (10)
  1. METOPROLOL [Concomitant]
     Dosage: UNK
     Dates: start: 20090917
  2. MONTELUKAST [Concomitant]
  3. RAPAMUNE [Suspect]
     Indication: RENAL TRANSPLANT
     Dosage: 3 MG, 1X/DAY
     Route: 048
     Dates: start: 20100322
  4. PROTONIX [Concomitant]
     Dosage: UNK
     Dates: start: 20100101
  5. PRAVACHOL [Concomitant]
     Dosage: UNK
     Dates: start: 20091222
  6. FLUTICASONE PROPIONATE [Concomitant]
  7. BELATACEPT [Suspect]
     Indication: RENAL TRANSPLANT
     Dosage: 10 MG/KG, UNK
     Route: 042
     Dates: start: 20090829, end: 20100211
  8. LISINOPRIL [Concomitant]
     Dosage: UNK
     Dates: start: 20091217
  9. BELATACEPT [Suspect]
     Dosage: 5 MG/KG
     Route: 042
     Dates: start: 20100212
  10. TRAZODONE HYDROCHLORIDE [Concomitant]

REACTIONS (4)
  - INFLUENZA [None]
  - PYELONEPHRITIS [None]
  - COLITIS ULCERATIVE [None]
  - UROSEPSIS [None]
